FAERS Safety Report 6094530-7 (Version None)
Quarter: 2009Q1

REPORT INFORMATION
  Report Type: 
  Country: None (occurrence: None)
  Receive Date: 20090226
  Receipt Date: 20090223
  Transmission Date: 20090719
  Serious: Yes (Other)
  Sender: FDA-Public Use
  Company Number: NL-ROXANE LABORATORIES, INC.-2009-RO-00182RO

PATIENT
  Age: 52 Year
  Sex: Female

DRUGS (10)
  1. CYCLOPHOSPHAMIDE [Suspect]
     Indication: BREAST CANCER METASTATIC
  2. FLUCONAZOLE [Suspect]
     Indication: ANTIBIOTIC PROPHYLAXIS
     Route: 048
  3. DEXAMETHASONE [Suspect]
  4. GRANISETRON [Suspect]
  5. CARBOPLATIN [Suspect]
     Indication: BREAST CANCER METASTATIC
  6. THIOTEPA [Suspect]
     Indication: BREAST CANCER METASTATIC
  7. MESNA [Suspect]
     Indication: BREAST CANCER METASTATIC
     Dosage: 3000MG
  8. CIPROFLOXACIN [Suspect]
     Indication: ANTIBIOTIC PROPHYLAXIS
     Route: 048
  9. CARBAMAZEPINE [Suspect]
     Indication: EPILEPSY
     Dosage: 400MG
  10. VIGABATRIN [Suspect]
     Indication: EPILEPSY
     Dosage: 1000MG
     Route: 048

REACTIONS (3)
  - DRUG INTERACTION [None]
  - NAUSEA [None]
  - VOMITING [None]
